FAERS Safety Report 6342856-1 (Version None)
Quarter: 2009Q3

REPORT INFORMATION
  Report Type: 
  Country: None (occurrence: None)
  Receive Date: 20090908
  Receipt Date: 20090903
  Transmission Date: 20100115
  Serious: No
  Sender: FDA-Public Use
  Company Number: US-JNJFOC-20090902243

PATIENT
  Sex: Female

DRUGS (3)
  1. FENTANYL TRANSDERMAL SYSTEM [Suspect]
     Indication: BACK PAIN
     Route: 062
  2. ELAVIL [Concomitant]
     Indication: DEPRESSION
     Dosage: 2 AT NIGHT
     Route: 048
  3. VICODIN [Concomitant]
     Indication: BREAKTHROUGH PAIN
     Dosage: 1 TABLET EVERY 4-6 HOURS AS NEEDED

REACTIONS (1)
  - WRONG TECHNIQUE IN DRUG USAGE PROCESS [None]
